FAERS Safety Report 6445545-8 (Version None)
Quarter: 2009Q4

REPORT INFORMATION
  Report Type: 
  Country: None (occurrence: None)
  Receive Date: 20091118
  Receipt Date: 20091110
  Transmission Date: 20100525
  Serious: Yes (Hospitalization)
  Sender: FDA-Public Use
  Company Number: US-SANOFI-AVENTIS-D01200705170

PATIENT
  Age: 81 Year
  Sex: Female
  Weight: 75.8 kg

DRUGS (14)
  1. CLOPIDOGREL BISULFATE [Suspect]
     Indication: ACUTE CORONARY SYNDROME
     Route: 048
     Dates: start: 20070724, end: 20070729
  2. ASPIRIN [Concomitant]
     Indication: ACUTE CORONARY SYNDROME
     Dosage: DOSE TEXT: AT LEAST 300 MG D1; 75-100 MG FROM D2 TO D30
     Route: 048
     Dates: start: 20070724
  3. MICARDIS [Concomitant]
  4. LEVOTHYROXINE SODIUM [Concomitant]
  5. HYDROCODONE [Concomitant]
  6. REGLAN /YUG/ [Concomitant]
  7. AMITRIPTYLINE HCL [Concomitant]
  8. EFFEXOR [Concomitant]
  9. CLONAZEPAM [Concomitant]
  10. NEXIUM /UNK/ [Concomitant]
  11. DILTIAZEM [Concomitant]
  12. POTASSIUM CHLORIDE [Concomitant]
  13. SLOW-MAG [Concomitant]
  14. IPRATROPIUM BROMIDE/SALBUTAMOL SULFATE [Concomitant]

REACTIONS (1)
  - GASTROENTERITIS [None]
